FAERS Safety Report 15150811 (Version 3)
Quarter: 2018Q4

REPORT INFORMATION
  Report Type: Spontaneous
  Country: US (occurrence: US)
  Receive Date: 20180716
  Receipt Date: 20181008
  Transmission Date: 20190204
  Serious: Yes (Other)
  Sender: FDA-Public Use
  Company Number: US-SA-2018SA149531

PATIENT
  Age: 57 Year
  Sex: Female
  Weight: 66.6 kg

DRUGS (11)
  1. TAXOTERE [Suspect]
     Active Substance: DOCETAXEL
     Indication: BREAST CANCER
     Dosage: UNK UNK, Q3W
     Route: 042
     Dates: start: 20141224, end: 20141224
  2. NEOSAR [Concomitant]
     Active Substance: CYCLOPHOSPHAMIDE
  3. ESTRADIOL. [Concomitant]
     Active Substance: ESTRADIOL
     Dosage: UNK
     Dates: start: 2014, end: 201408
  4. PRAVASTATIN. [Concomitant]
     Active Substance: PRAVASTATIN
     Dosage: UNK
     Dates: start: 2010, end: 201508
  5. CYTOXAN [Concomitant]
     Active Substance: CYCLOPHOSPHAMIDE
  6. CLARITIN ALLERGIC [Concomitant]
  7. TAXOTERE [Suspect]
     Active Substance: DOCETAXEL
     Dosage: UNKNOWN
     Route: 042
     Dates: start: 20150202, end: 20150202
  8. FENOFIBRATE. [Concomitant]
     Active Substance: FENOFIBRATE
  9. NEULASTA [Concomitant]
     Active Substance: PEGFILGRASTIM
  10. PROGESTERONE. [Concomitant]
     Active Substance: PROGESTERONE
     Dosage: UNK
     Dates: start: 2008, end: 201408
  11. DECADRON [DEXAMETHASONE ACETATE] [Concomitant]

REACTIONS (2)
  - Alopecia [Not Recovered/Not Resolved]
  - Psychological trauma [Unknown]

NARRATIVE: CASE EVENT DATE: 201412
